FAERS Safety Report 9678466 (Version 3)
Quarter: 2014Q1

REPORT INFORMATION
  Report Type: Report from Study
  Country: KR (occurrence: KR)
  Receive Date: 20131108
  Receipt Date: 20140307
  Transmission Date: 20141002
  Serious: Yes (Death, Other)
  Sender: FDA-Public Use
  Company Number: KR-BRISTOL-MYERS SQUIBB COMPANY-19681675

PATIENT
  Age: 51 Year
  Sex: Female

DRUGS (1)
  1. SPRYCEL [Suspect]
     Indication: ACUTE LYMPHOCYTIC LEUKAEMIA
     Route: 048
     Dates: start: 20130621, end: 20130719

REACTIONS (1)
  - Renal failure acute [Fatal]
